FAERS Safety Report 24832312 (Version 1)
Quarter: 2025Q1

REPORT INFORMATION
  Report Type: Spontaneous
  Country: IE (occurrence: IE)
  Receive Date: 20250110
  Receipt Date: 20250110
  Transmission Date: 20250409
  Serious: Yes (Life-Threatening, Hospitalization, Other)
  Sender: TEVA
  Company Number: IE-TEVA-VS-3282099

PATIENT
  Age: 35 Year
  Sex: Female
  Weight: 91 kg

DRUGS (14)
  1. METFORMIN [Suspect]
     Active Substance: METFORMIN HYDROCHLORIDE
     Indication: Type 1 diabetes mellitus
     Dosage: DOSAGE TEXT: THERAPY END DATE ASKU, METFORMIN HYDROCHLORIDE
     Route: 065
     Dates: start: 20150408
  2. INSULIN LISPRO [Suspect]
     Active Substance: INSULIN LISPRO
     Indication: Type 1 diabetes mellitus
     Dosage: DOSAGE TEXT: THERAPY END DATE ASKU
     Route: 058
     Dates: start: 20021016
  3. INSULIN LISPRO [Suspect]
     Active Substance: INSULIN LISPRO
     Indication: Type 1 diabetes mellitus
     Dosage: DOSAGE TEXT: THERAPY START DATE ASKU, THERAPY END DATE ASKU
     Route: 058
  4. INSULIN LISPRO [Suspect]
     Active Substance: INSULIN LISPRO
     Indication: Type 1 diabetes mellitus
     Dosage: DOSAGE TEXT: THERAPY START DATE ASKU, THERAPY END DATE ASKU
     Route: 058
  5. LANTUS [Suspect]
     Active Substance: INSULIN GLARGINE
     Indication: Type 1 diabetes mellitus
     Dosage: DOSAGE TEXT: 42 IU, THERAPY END DATE :ASKU
     Route: 058
     Dates: start: 20021016
  6. LANTUS [Suspect]
     Active Substance: INSULIN GLARGINE
     Indication: Type 1 diabetes mellitus
     Dosage: DOSAGE TEXT: THERAPY START DATE ASKU, THERAPY END DATE ASKU
     Route: 058
  7. LANTUS [Suspect]
     Active Substance: INSULIN GLARGINE
     Indication: Type 1 diabetes mellitus
     Dosage: DOSAGE TEXT: THERAPY START DATE ASKU, THERAPY END DATE ASKU
     Route: 058
  8. LANTUS [Suspect]
     Active Substance: INSULIN GLARGINE
     Indication: Type 1 diabetes mellitus
     Dosage: DOSAGE TEXT: THERAPY END DATE ASKU
     Route: 058
     Dates: start: 20021016
  9. ACTRAPID [Concomitant]
     Active Substance: INSULIN HUMAN
     Route: 041
     Dates: start: 20170907
  10. LYRICA [Concomitant]
     Active Substance: PREGABALIN
     Route: 065
     Dates: start: 20120907
  11. LEVOTHYROXINE [Concomitant]
     Active Substance: LEVOTHYROXINE
     Route: 065
     Dates: start: 20170406
  12. SERTRALINE [Concomitant]
     Active Substance: SERTRALINE HYDROCHLORIDE
     Route: 065
     Dates: start: 2000
  13. AMITRIPTYLINE [Concomitant]
     Active Substance: AMITRIPTYLINE
     Route: 065
     Dates: start: 20120907
  14. FOLIC ACID [Concomitant]
     Active Substance: FOLIC ACID
     Route: 065
     Dates: start: 20170323

REACTIONS (9)
  - Product use issue [Unknown]
  - Maternal exposure during pregnancy [Unknown]
  - Caesarean section [Recovered/Resolved]
  - Diabetes mellitus inadequate control [Recovered/Resolved]
  - Postpartum haemorrhage [Recovered/Resolved]
  - Hypoglycaemia [Recovered/Resolved]
  - Diabetes mellitus inadequate control [Recovered/Resolved]
  - Diabetes mellitus inadequate control [Recovered/Resolved]
  - Infection [Unknown]

NARRATIVE: CASE EVENT DATE: 20170420
